FAERS Safety Report 24669420 (Version 1)
Quarter: 2024Q4

REPORT INFORMATION
  Report Type: Spontaneous
  Country: JP (occurrence: JP)
  Receive Date: 20241127
  Receipt Date: 20241127
  Transmission Date: 20250114
  Serious: Yes (Other)
  Sender: MYLAN
  Company Number: JP-MYLANLABS-2024M1105718

PATIENT
  Age: 33 Year
  Sex: Male

DRUGS (10)
  1. ENALAPRIL [Suspect]
     Active Substance: ENALAPRIL
     Indication: Cardiac failure
     Dosage: 5 MILLIGRAM
     Route: 065
  2. CARVEDILOL [Suspect]
     Active Substance: CARVEDILOL
     Indication: Cardiac failure
     Dosage: 10 MILLIGRAM
     Route: 065
  3. IMMUNE GLOBULIN NOS [Suspect]
     Active Substance: IMMUNE GLOBULIN NOS
     Indication: Myocarditis
     Dosage: UNK
     Route: 042
  4. SPIRONOLACTONE [Suspect]
     Active Substance: SPIRONOLACTONE
     Indication: Cardiac failure
     Dosage: 25 MILLIGRAM
     Route: 065
  5. SPIRONOLACTONE [Suspect]
     Active Substance: SPIRONOLACTONE
     Dosage: 50 MILLIGRAM
     Route: 065
  6. SACUBITRIL\VALSARTAN [Suspect]
     Active Substance: SACUBITRIL\VALSARTAN
     Indication: Cardiac failure
     Dosage: 100 MILLIGRAM
     Route: 065
  7. DAPAGLIFLOZIN [Suspect]
     Active Substance: DAPAGLIFLOZIN
     Indication: Cardiac failure
     Dosage: 10 MILLIGRAM
     Route: 065
  8. IVABRADINE [Suspect]
     Active Substance: IVABRADINE
     Indication: Cardiac failure
     Dosage: 5 MILLIGRAM
     Route: 065
  9. METHYLPREDNISOLONE [Suspect]
     Active Substance: METHYLPREDNISOLONE
     Indication: Myocarditis
     Dosage: UNK
     Route: 042
  10. PREDNISOLONE [Concomitant]
     Active Substance: PREDNISOLONE
     Indication: Myocarditis
     Dosage: 1 MILLIGRAM/KILOGRAM, QD
     Route: 048

REACTIONS (1)
  - Drug ineffective [Unknown]
